FAERS Safety Report 13565757 (Version 3)
Quarter: 2018Q2

REPORT INFORMATION
  Report Type: Spontaneous
  Country: DE (occurrence: DE)
  Receive Date: 20170520
  Receipt Date: 20180426
  Transmission Date: 20180711
  Serious: Yes (Hospitalization, Other)
  Sender: FDA-Public Use
  Company Number: DE-TORRENT-00006321

PATIENT
  Age: 54 Year
  Sex: Female

DRUGS (11)
  1. QUETIAPINE. [Interacting]
     Active Substance: QUETIAPINE
     Indication: SCHIZOAFFECTIVE DISORDER
     Dosage: UP TO 400 MG
     Route: 048
     Dates: start: 2012
  2. SERTRALINE [Concomitant]
     Active Substance: SERTRALINE HYDROCHLORIDE
     Indication: SCHIZOAFFECTIVE DISORDER
     Dosage: 50.0 MG UNKNOWN
     Route: 065
  3. PREGABALIN. [Concomitant]
     Active Substance: PREGABALIN
     Indication: SCHIZOAFFECTIVE DISORDER
     Dosage: 200.0 MG UNKNOWN
     Route: 065
  4. VALPROAT [Suspect]
     Active Substance: VALPROATE SODIUM
     Indication: SCHIZOAFFECTIVE DISORDER
     Dosage: 1050.0 MG UNKNOWN
     Route: 065
     Dates: start: 2013
  5. MIRTAZAPINE. [Concomitant]
     Active Substance: MIRTAZAPINE
     Indication: SCHIZOAFFECTIVE DISORDER
     Dosage: UNKNOWN
     Route: 065
     Dates: start: 2012
  6. ARIPIPRAZOLE. [Concomitant]
     Active Substance: ARIPIPRAZOLE
     Indication: SCHIZOAFFECTIVE DISORDER
     Dosage: 5.0MG UNKNOWN
     Route: 065
  7. CHLORPROTHIXENE [Concomitant]
     Active Substance: CHLORPROTHIXENE
     Indication: SCHIZOAFFECTIVE DISORDER
     Dosage: UNKNOWN
     Route: 065
     Dates: start: 2007
  8. ZOLPIDEM [Concomitant]
     Active Substance: ZOLPIDEM\ZOLPIDEM TARTRATE
     Indication: SCHIZOAFFECTIVE DISORDER
     Dosage: UNKNOWN
     Route: 065
     Dates: start: 2007
  9. OLANZAPINE. [Concomitant]
     Active Substance: OLANZAPINE
     Indication: SCHIZOAFFECTIVE DISORDER
     Dosage: UNKNOWN
     Route: 065
     Dates: start: 2012
  10. TRAZODONE [Concomitant]
     Active Substance: TRAZODONE HYDROCHLORIDE
     Indication: SCHIZOAFFECTIVE DISORDER
     Dosage: UNKNOWN
     Route: 065
     Dates: start: 2007
  11. ZIPRASIDONE. [Concomitant]
     Active Substance: ZIPRASIDONE
     Indication: SCHIZOAFFECTIVE DISORDER
     Dosage: UNKNOWN
     Route: 065
     Dates: start: 2007

REACTIONS (19)
  - Dizziness [Recovering/Resolving]
  - Cognitive disorder [Recovered/Resolved]
  - Visual acuity reduced [Recovered/Resolved]
  - Psychotic disorder [Unknown]
  - Asthenia [Recovered/Resolved]
  - Disturbance in attention [Recovered/Resolved]
  - Depression [Unknown]
  - Memory impairment [Recovered/Resolved]
  - Gait disturbance [Recovered/Resolved]
  - Tremor [Recovered/Resolved]
  - Balance disorder [Recovering/Resolving]
  - Parkinsonism [Recovered/Resolved]
  - Drug interaction [Unknown]
  - Off label use [Unknown]
  - Extrapyramidal disorder [Recovered/Resolved]
  - Extrapyramidal disorder [Unknown]
  - Disorientation [Recovered/Resolved]
  - Muscle rigidity [Recovered/Resolved]
  - Drug ineffective [Unknown]
